FAERS Safety Report 4417832-6 (Version None)
Quarter: 2004Q2

REPORT INFORMATION
  Report Type: 
  Country: None (occurrence: None)
  Receive Date: 20040621
  Receipt Date: 20040326
  Transmission Date: 20050107
  Serious: Yes (Other)
  Sender: FDA-Public Use
  Company Number: 2004021093

PATIENT
  Age: 54 Year
  Sex: Male
  Weight: 79.3 kg

DRUGS (19)
  1. VORICONAZOLE (VORICONAZOLE) [Suspect]
     Indication: FUNGAL INFECTION
     Dosage: 200 MG (BID),ORAL
     Route: 048
     Dates: start: 20030812, end: 20030816
  2. ACYCLOVIR [Concomitant]
  3. ALLOPURINOL [Concomitant]
  4. BACTRIM [Concomitant]
  5. BUSULFAN [Concomitant]
  6. CEFEPIME (CEFEPIME) [Concomitant]
  7. CYCLOPHOSPHAMIDE [Concomitant]
  8. CLONAZEPAM [Concomitant]
  9. CYCLOSPORINE [Concomitant]
  10. DEXAMETHASONE [Concomitant]
  11. DILTIAZEM [Concomitant]
  12. HEPARIN [Concomitant]
  13. ETOPOSIDE [Concomitant]
  14. FAMOTIDINE [Concomitant]
  15. FILGRASTIM (FILGRASTIM) [Concomitant]
  16. FUROSEMIDE [Concomitant]
  17. METHYLPREDNISOLONE [Concomitant]
  18. URSODEOXYCHOLIC ACID (URSODEOXYCHOLIC ACID) [Concomitant]
  19. PIP/TAZO (PIPERACILLIN SODIUM, TAZOBACTAM SODIUM) [Concomitant]

REACTIONS (2)
  - NIGHTMARE [None]
  - VISUAL DISTURBANCE [None]
